FAERS Safety Report 9750019 (Version 2)
Quarter: 2015Q3

REPORT INFORMATION
  Report Type: Spontaneous
  Country: DE (occurrence: DE)
  Receive Date: 20131212
  Receipt Date: 20150730
  Transmission Date: 20151125
  Serious: No
  Sender: FDA-Public Use
  Company Number: DE-GILEAD-DE-CVT-090549

PATIENT
  Age: 86 Year
  Sex: Female

DRUGS (7)
  1. TOREM                              /01036501/ [Concomitant]
     Active Substance: TORSEMIDE
     Route: 048
  2. RANEXA [Suspect]
     Active Substance: RANOLAZINE
     Indication: ANGINA UNSTABLE
     Route: 048
     Dates: start: 20090730, end: 20090810
  3. DIOVAN                             /01319601/ [Concomitant]
     Route: 048
  4. METOPROLOL                         /00376901/ [Concomitant]
     Route: 048
  5. DIGIMERCK [Concomitant]
     Active Substance: DIGITOXIN
     Route: 048
  6. ALLOPURINOL. [Concomitant]
     Active Substance: ALLOPURINOL
     Route: 048
  7. PLAVIX [Concomitant]
     Active Substance: CLOPIDOGREL BISULFATE
     Route: 048

REACTIONS (2)
  - Dry mouth [Recovered/Resolved]
  - Dizziness [Recovered/Resolved]

NARRATIVE: CASE EVENT DATE: 20090731
